FAERS Safety Report 10195836 (Version 1)
Quarter: 2014Q2

REPORT INFORMATION
  Report Type: Spontaneous
  Country: US (occurrence: None)
  Receive Date: 20140522
  Receipt Date: 20140522
  Transmission Date: 20141212
  Serious: Yes (Hospitalization)
  Sender: FDA-Public Use
  Company Number: QSC-2014-0316

PATIENT
  Age: 56 Year
  Sex: Female
  Weight: 86.2 kg

DRUGS (44)
  1. H P ACTHAR GEL [Suspect]
     Indication: SARCOIDOSIS
  2. HYPROMELLOSE [Concomitant]
  3. ASPRIN [Concomitant]
  4. BISACODYL (BISACODYL) [Concomitant]
  5. CHOLECALCIFEROL [Concomitant]
  6. DESVENLAFAXINE SUCCINATE [Concomitant]
  7. DIAZEPAM (DIAZEPAM) [Concomitant]
  8. DICLOFENAC (DICLOFENAC) [Concomitant]
  9. FLUTICASONE (FLUTICASONE) [Concomitant]
  10. FUROSEMIDE (FUROSEMIDE) [Concomitant]
  11. HEPARIN (HEPARIN) [Concomitant]
  12. HYDRALAZINE (HYDRALAZINE) [Concomitant]
  13. HYDROMORPHONE (HYDROMORPHONE) [Concomitant]
  14. LAMOTRIGINE (LAMOTRIGINE) [Concomitant]
  15. LEVALBUTEROL [Concomitant]
  16. LEVOTHYROXINE (LEVOTHYROXINE) [Concomitant]
  17. LIOTHYRONINE [Concomitant]
  18. ONDANSETRON (ONDANSETRON) [Concomitant]
  19. OXYCODONE (OXYCODONE) [Concomitant]
  20. PANTOPRAZOLE (PANTOPRAZOLE) [Concomitant]
  21. PRENATAL [Concomitant]
  22. POTASSIUM CHLORIDE (POTASSIUM CHLORIDE) [Concomitant]
  23. PRAMIPEXOLE (PRAMIPEXOLE) [Concomitant]
  24. PREDNISOLONE ACETATE [Concomitant]
  25. SODIUM CHLORIDE (SODIUM CHLORIDE) [Concomitant]
  26. SUMATRIPTAN (SUMATRIPTAN) [Concomitant]
  27. TIZANIDINE (TIZANIDINE) [Concomitant]
  28. TOPIRAMATE [Concomitant]
  29. TRAZODONE (TRAZODONE) [Concomitant]
  30. VANCOMYCIN (VANCOMYCIN) [Concomitant]
  31. ZOLPIDEM [Concomitant]
  32. ACYCLOVIR [Concomitant]
  33. EXCEDRIN MIGRAINE [Concomitant]
  34. CYANOCOBALAMIN [Concomitant]
  35. DESVENLAFAXINE [Concomitant]
  36. LIDOCAINE VISCOUS [Concomitant]
  37. BENADRYL [Concomitant]
  38. MAALOX [Concomitant]
  39. NYSTATIN (NYSTATIN) [Concomitant]
  40. NYSTATIN AND TRIAMCINOLONE [Concomitant]
  41. ULORIC (FEBUXOSTAT) [Concomitant]
  42. VOLTAREN [Concomitant]
  43. DOCUSATE SODIUM (DOCUSATE SODIUM) [Concomitant]
  44. FERROUS SULFATE (FERROUS SULFATE) [Concomitant]

REACTIONS (13)
  - Acute respiratory failure [None]
  - Pain in extremity [None]
  - Hypotension [None]
  - Chills [None]
  - Tachycardia [None]
  - Vomiting [None]
  - Nausea [None]
  - Renal failure chronic [None]
  - Fluid retention [None]
  - Weight increased [None]
  - Oedema peripheral [None]
  - Iron deficiency anaemia [None]
  - Stasis dermatitis [None]
